FAERS Safety Report 23841425 (Version 1)
Quarter: 2024Q2

REPORT INFORMATION
  Report Type: Spontaneous
  Country: US (occurrence: None)
  Receive Date: 20240509
  Receipt Date: 20240509
  Transmission Date: 20240716
  Serious: No
  Sender: FDA-Public Use
  Company Number: None

PATIENT
  Sex: Female

DRUGS (2)
  1. BALVERSA [Suspect]
     Active Substance: ERDAFITINIB
     Indication: Malignant urinary tract neoplasm
     Dosage: FREQUENCY : DAILY;?
     Route: 048
     Dates: start: 202307
  2. DUPIXENT SYR [Concomitant]

REACTIONS (3)
  - Urinary tract infection [None]
  - Staphylococcal infection [None]
  - Haematological infection [None]
